FAERS Safety Report 5080051-7 (Version None)
Quarter: 2006Q3

REPORT INFORMATION
  Report Type: 
  Country: None (occurrence: None)
  Receive Date: 20060815
  Receipt Date: 20060809
  Transmission Date: 20061208
  Serious: Yes (Death, Life-Threatening)
  Sender: FDA-Public Use
  Company Number: US-JNJFOC-20040807647

PATIENT
  Sex: Female
  Weight: 98.88 kg

DRUGS (7)
  1. FLEXERIL [Suspect]
     Indication: DRUG USE FOR UNKNOWN INDICATION
     Route: 048
  2. ACETAMINOPHEN [Suspect]
  3. ACETAMINOPHEN [Suspect]
     Indication: OSTEOARTHRITIS
  4. ELAVIL [Suspect]
     Indication: DRUG USE FOR UNKNOWN INDICATION
     Route: 048
  5. ETORICOXIB [Concomitant]
     Indication: OSTEOARTHRITIS
  6. SULFIUM [Concomitant]
  7. OMEPRAZOLE [Concomitant]

REACTIONS (3)
  - COMPLETED SUICIDE [None]
  - OVERDOSE [None]
  - SUDDEN DEATH [None]
